FAERS Safety Report 22145678 (Version 1)
Quarter: 2023Q1

REPORT INFORMATION
  Report Type: Spontaneous
  Country: SK (occurrence: SK)
  Receive Date: 20230328
  Receipt Date: 20230328
  Transmission Date: 20230417
  Serious: Yes (Other)
  Sender: FDA-Public Use
  Company Number: SK-GLAXOSMITHKLINE-SK2023EME044160

PATIENT

DRUGS (1)
  1. NUCALA [Suspect]
     Active Substance: MEPOLIZUMAB
     Indication: Asthma
     Dosage: 100 MG, Z, ONCE EVERY 4 WEEKS
     Route: 058
     Dates: start: 202212

REACTIONS (5)
  - Petechiae [Unknown]
  - Haematoma [Unknown]
  - Purpura [Unknown]
  - Oedema peripheral [Unknown]
  - Jaundice [Unknown]
